FAERS Safety Report 11311681 (Version 1)
Quarter: 2015Q3

REPORT INFORMATION
  Report Type: Spontaneous
  Country: GB (occurrence: GB)
  Receive Date: 20150727
  Receipt Date: 20150727
  Transmission Date: 20151125
  Serious: Yes (Other)
  Sender: FDA-Public Use
  Company Number: GB-TEVA-579750ACC

PATIENT
  Age: 65 Year
  Sex: Male
  Weight: 87.99 kg

DRUGS (2)
  1. ADALAT CC [Concomitant]
     Active Substance: NIFEDIPINE
  2. ATORVASTATIN [Suspect]
     Active Substance: ATORVASTATIN
     Indication: BLOOD CHOLESTEROL INCREASED
     Dosage: 20 MILLIGRAM DAILY; AT NIGHT.
     Route: 048
     Dates: start: 20150227, end: 20150422

REACTIONS (4)
  - Dermatitis [Recovering/Resolving]
  - Erythema multiforme [Recovering/Resolving]
  - Skin discolouration [Not Recovered/Not Resolved]
  - Rash erythematous [Recovering/Resolving]

NARRATIVE: CASE EVENT DATE: 20150309
